FAERS Safety Report 4626539-1 (Version None)
Quarter: 2005Q1

REPORT INFORMATION
  Report Type: 
  Country: None (occurrence: None)
  Receive Date: 20050330
  Receipt Date: 20050315
  Transmission Date: 20050727
  Serious: Yes (Hospitalization, Other)
  Sender: FDA-Public Use
  Company Number: USA040362427

PATIENT
  Age: 71 Year
  Sex: Female
  Weight: 89 kg

DRUGS (19)
  1. FORTEO [Suspect]
     Indication: OSTEOPOROSIS
     Dosage: 20 UG/1 DAY
     Dates: start: 20031201
  2. GLUCOPHAGE [Concomitant]
  3. ENALAPRIL [Concomitant]
  4. CELEBREX [Concomitant]
  5. AMIODARONE [Concomitant]
  6. ELAVIL [Concomitant]
  7. ASPIRIN [Concomitant]
  8. VALIUM [Concomitant]
  9. APO-METOPROLOL (METOPROLOL TARTRATE) [Concomitant]
  10. ALTACE [Concomitant]
  11. ZOSTRIX (CAPSAICIN) [Concomitant]
  12. LORCET-HD [Concomitant]
  13. ATACAND [Concomitant]
  14. GLIPIZIDE [Concomitant]
  15. LIDODERM (LIDOCAINE JELLY) [Concomitant]
  16. FUROSEMIDE [Concomitant]
  17. NEURONTIN (GABAPENTIN PFIZER) [Concomitant]
  18. PREVACID [Concomitant]
  19. ZOCOR (SIMVASTATIN RATIOPHARM) [Concomitant]

REACTIONS (11)
  - AMNESIA [None]
  - ASTHENIA [None]
  - CHROMATURIA [None]
  - DEHYDRATION [None]
  - LOSS OF CONSCIOUSNESS [None]
  - PAIN IN EXTREMITY [None]
  - PHARMACEUTICAL PRODUCT COMPLAINT [None]
  - RENAL DISORDER [None]
  - RENAL IMPAIRMENT [None]
  - STRESS [None]
  - TREMOR [None]
